FAERS Safety Report 13368537 (Version 1)
Quarter: 2017Q1

REPORT INFORMATION
  Report Type: Spontaneous
  Country: US (occurrence: US)
  Receive Date: 20170324
  Receipt Date: 20170324
  Transmission Date: 20170429
  Serious: No
  Sender: FDA-Public Use
  Company Number: US-PFIZER INC-2017123300

PATIENT
  Age: 59 Year
  Sex: Female
  Weight: 63.5 kg

DRUGS (5)
  1. ZOLOFT [Suspect]
     Active Substance: SERTRALINE HYDROCHLORIDE
     Dosage: A HALF A TABLET EVERY OTHER DAY
  2. QUINAPRIL. [Concomitant]
     Active Substance: QUINAPRIL
     Indication: BLOOD PRESSURE ABNORMAL
     Dosage: UNK
  3. WELLBUTRIN [Concomitant]
     Active Substance: BUPROPION HYDROCHLORIDE
     Indication: ADJUSTMENT DISORDER WITH DEPRESSED MOOD
     Dosage: UNK
  4. MAXIVEN [Concomitant]
     Indication: DIURETIC THERAPY
     Dosage: UNK
  5. ZOLOFT [Suspect]
     Active Substance: SERTRALINE HYDROCHLORIDE
     Indication: ADJUSTMENT DISORDER WITH DEPRESSED MOOD
     Dosage: 200 MG, DAILY
     Dates: start: 1999

REACTIONS (5)
  - Dyskinesia [Recovering/Resolving]
  - Nausea [Recovering/Resolving]
  - Blood alkaline phosphatase increased [Unknown]
  - Vomiting [Not Recovered/Not Resolved]
  - Drug dose omission [Unknown]

NARRATIVE: CASE EVENT DATE: 20170306
